FAERS Safety Report 11938192 (Version 2)
Quarter: 2016Q1

REPORT INFORMATION
  Report Type: Spontaneous
  Country: JP (occurrence: JP)
  Receive Date: 20160122
  Receipt Date: 20160204
  Transmission Date: 20160526
  Serious: Yes (Death)
  Sender: FDA-Public Use
  Company Number: JP-009507513-1601JPN002949

PATIENT
  Age: 54 Year
  Sex: Male

DRUGS (18)
  1. CALCIUM CARBONATE. [Concomitant]
     Active Substance: CALCIUM CARBONATE
     Dosage: DAILY DOSE UNKNOWN, FREQUENCY: THREE TIMES A DAY
     Route: 048
  2. ALLELOCK [Concomitant]
     Active Substance: OLOPATADINE HYDROCHLORIDE
     Dosage: DAILY DOSE UNKNOWN, FREQUENCY: TWICE A DAY
     Route: 048
  3. FEBURIC [Concomitant]
     Active Substance: FEBUXOSTAT
     Dosage: DAILY DOSE UNKNOWN, IN THE EVENING, FREQUENCY: ONCE DAILY
     Route: 048
  4. LYRICA [Concomitant]
     Active Substance: PREGABALIN
     Dosage: FORMULATION-POR, DAILY DOSE UNKNOWN
     Route: 048
     Dates: start: 20160106
  5. BELSOMRA [Suspect]
     Active Substance: SUVOREXANT
     Indication: INSOMNIA
     Dosage: 15 MG, ONCE A DAY
     Route: 048
     Dates: start: 20160104, end: 20160104
  6. MYONAL [Concomitant]
     Active Substance: EPERISONE HYDROCHLORIDE
     Dosage: DAILY DOSE UNKNOWN, FREQUENCY: TWICE A DAY
     Route: 048
  7. REGPARA [Concomitant]
     Active Substance: CINACALCET HYDROCHLORIDE
     Dosage: DAILY DOSE UNKNOWN, IN THE EVNING, FREQUENCY: ONCE DAILY
     Route: 048
  8. LOXONIN [Concomitant]
     Active Substance: LOXOPROFEN SODIUM
     Dosage: DAILY DOSE UNKNOWN, FREQUENCY: ONCE DAILY
     Route: 062
  9. PIARLE [Concomitant]
     Dosage: 65 ML, TID
     Route: 048
     Dates: start: 20160104
  10. VITAMINS NOS [Concomitant]
     Active Substance: VITAMINS
     Dosage: DAILY DOSE UNKNOWN, FREQUENCY: THREE TIMES A DAY
     Route: 048
  11. FOSRENOL [Concomitant]
     Active Substance: LANTHANUM CARBONATE
     Dosage: DAILY DOSE UNKNOWN, FREQUENCY: THREE TIMES A DAY
     Route: 048
  12. BONALON [Concomitant]
     Active Substance: ALENDRONATE SODIUM
     Dosage: DAILY DOSE UNKNOWN, FREQUENCY: ONCE WEEKLY
     Route: 048
  13. DAI-KENCHU-TO [Concomitant]
     Active Substance: MALTOSE
     Dosage: 2.5 G, TID
     Route: 048
     Dates: start: 20160104
  14. SODIUM PICOSULFATE [Concomitant]
     Active Substance: SODIUM PICOSULFATE
     Indication: CONSTIPATION
     Dosage: 10 ML AS NEEDED, DAILY DOSE UNKNOWN, FORMULATION SOLUTION
     Route: 048
     Dates: start: 20151228
  15. PURSENNID (SENNOSIDES) [Concomitant]
     Dosage: 48 MG AT BEDTIME, ONCE A DAY
     Route: 048
  16. CELECOX [Concomitant]
     Active Substance: CELECOXIB
     Dosage: DAILY DOSE UNKNOWN, FREQUENCY: TWICE A DAY
     Route: 048
  17. NEXIUM [Concomitant]
     Active Substance: ESOMEPRAZOLE MAGNESIUM
     Dosage: DAILY DOSE UNKNOWN, IN THE EVENING, FREQUENCY: ONCE DAILY
     Route: 048
  18. LUNESTA [Concomitant]
     Active Substance: ESZOPICLONE
     Dosage: FORMULATION-POR, DAILY DOSE UNKNOWN
     Route: 048
     Dates: start: 20160106

REACTIONS (4)
  - Somnolence [Unknown]
  - Hangover [Unknown]
  - Underdose [Unknown]
  - Death [Fatal]

NARRATIVE: CASE EVENT DATE: 20160104
